FAERS Safety Report 24711136 (Version 1)
Quarter: 2024Q4

REPORT INFORMATION
  Report Type: Spontaneous
  Country: US (occurrence: US)
  Receive Date: 20241209
  Receipt Date: 20241209
  Transmission Date: 20250114
  Serious: No
  Sender: NOVARTIS
  Company Number: US-002147023-NVSC2024US233601

PATIENT
  Sex: Female

DRUGS (1)
  1. PROMACTA [Suspect]
     Active Substance: ELTROMBOPAG OLAMINE
     Indication: Pulmonary embolism
     Dosage: 50 MG, QD
     Route: 048
     Dates: start: 202411

REACTIONS (2)
  - Mood swings [Unknown]
  - Product use in unapproved indication [Unknown]
